FAERS Safety Report 25135672 (Version 1)
Quarter: 2025Q1

REPORT INFORMATION
  Report Type: Spontaneous
  Country: CN (occurrence: CN)
  Receive Date: 20250328
  Receipt Date: 20250328
  Transmission Date: 20250408
  Serious: Yes (Hospitalization)
  Sender: BAYER HEALTHCARE PHARMACEUTICALS INC.
  Company Number: CN-BAYER-2025A042553

PATIENT
  Age: 87 Year
  Sex: Female

DRUGS (2)
  1. GLUCOBAY [Interacting]
     Active Substance: ACARBOSE
     Indication: Diabetes mellitus
     Dosage: 50 MG, TID
     Route: 048
     Dates: start: 20250311, end: 20250315
  2. GLIPIZIDE [Interacting]
     Active Substance: GLIPIZIDE
     Indication: Diabetes mellitus
     Dosage: 10 MG, QD
     Route: 048
     Dates: start: 20250311, end: 20250315

REACTIONS (4)
  - Hypoglycaemic coma [Recovered/Resolved]
  - Altered state of consciousness [Recovered/Resolved]
  - Unresponsive to stimuli [Recovered/Resolved]
  - Foaming at mouth [Recovered/Resolved]

NARRATIVE: CASE EVENT DATE: 20250315
